FAERS Safety Report 9698951 (Version 1)
Quarter: 2013Q4

REPORT INFORMATION
  Report Type: Spontaneous
  Country: US (occurrence: US)
  Receive Date: 20131120
  Receipt Date: 20131120
  Transmission Date: 20140711
  Serious: No
  Sender: FDA-Public Use
  Company Number: US-TEVA-445459USA

PATIENT
  Sex: Male
  Weight: 104.42 kg

DRUGS (4)
  1. NUVIGIL [Suspect]
     Indication: ASTHENIA
  2. NUVIGIL [Suspect]
     Indication: MALAISE
  3. PEPCID [Concomitant]
  4. VITAMINS [Concomitant]

REACTIONS (1)
  - Off label use [Unknown]
